FAERS Safety Report 10475440 (Version 1)
Quarter: 2014Q3

REPORT INFORMATION
  Report Type: Spontaneous
  Country: US (occurrence: None)
  Receive Date: 20140924
  Receipt Date: 20140924
  Transmission Date: 20150326
  Serious: Yes (Disabling)
  Sender: FDA-Public Use
  Company Number: None

PATIENT
  Age: 52 Year
  Sex: Female
  Weight: 95.71 kg

DRUGS (3)
  1. WOMEN^S MULTI VITAMINS [Concomitant]
  2. VALTREX [Suspect]
     Active Substance: VALACYCLOVIR HYDROCHLORIDE
     Indication: ORAL HERPES
     Dosage: 2002/2003, 2012/2013  30 1 TABLET DAILY BY MOUTH
     Route: 048
     Dates: start: 2002
  3. DIOVAN [Concomitant]
     Active Substance: VALSARTAN

REACTIONS (1)
  - Diabetes mellitus [None]
